FAERS Safety Report 9159997 (Version 1)
Quarter: 2013Q1

REPORT INFORMATION
  Report Type: Spontaneous
  Country: US (occurrence: None)
  Receive Date: 20130214
  Receipt Date: 20130214
  Transmission Date: 20140127
  Serious: Yes (Other)
  Sender: FDA-Public Use
  Company Number: AUR-APL-2013-01213

PATIENT
  Age: 54 Year
  Sex: Male

DRUGS (2)
  1. SERTRALINE (SERTRALINE) (SERTRALINE) [Suspect]
     Indication: PRODUCT USED FOR UNKNOWN INDICATION
  2. COUMADIN (WARFARIN SODIUM) [Concomitant]

REACTIONS (4)
  - Pseudolymphoma [None]
  - Rash erythematous [None]
  - Epidermal necrosis [None]
  - Lymphocytic infiltration [None]
